FAERS Safety Report 5653106-3 (Version None)
Quarter: 2008Q1

REPORT INFORMATION
  Report Type: 
  Country: None (occurrence: None)
  Receive Date: 20080306
  Receipt Date: 20080220
  Transmission Date: 20080703
  Serious: Yes (Hospitalization, Other)
  Sender: FDA-Public Use
  Company Number: US-BAYER-200810603BCC

PATIENT
  Age: 69 Year
  Sex: Female
  Weight: 50 kg

DRUGS (4)
  1. ALEVE [Suspect]
     Indication: BACK PAIN
     Dosage: TOTAL DAILY DOSE: 220 MG  UNIT DOSE: 220 MG
     Route: 048
     Dates: start: 19980220
  2. CARDIAC MEDICATIONS [Concomitant]
  3. CHOLESTEROL MEDICATIONS [Concomitant]
  4. ANTI-REJECTION MEDICATIONS [Concomitant]
     Indication: RENAL TRANSPLANT

REACTIONS (1)
  - MYOCARDIAL INFARCTION [None]
